FAERS Safety Report 6790813-3 (Version None)
Quarter: 2010Q2

REPORT INFORMATION
  Report Type: 
  Country: None (occurrence: None)
  Receive Date: 20100624
  Receipt Date: 20100612
  Transmission Date: 20101027
  Serious: Yes (Hospitalization, Disabling, Other)
  Sender: FDA-Public Use
  Company Number: US-ELI_LILLY_AND_COMPANY-US201004001299

PATIENT
  Sex: Female

DRUGS (3)
  1. FORTEO [Suspect]
     Indication: OSTEOPOROSIS
     Dosage: 20 UG, DAILY (1/D)
  2. DARVOCET [Concomitant]
  3. NORCO [Concomitant]
     Dosage: UNK, AS NEEDED

REACTIONS (5)
  - FALL [None]
  - HUMERUS FRACTURE [None]
  - NERVE INJURY [None]
  - THROAT IRRITATION [None]
  - UPPER LIMB FRACTURE [None]
